FAERS Safety Report 21489825 (Version 2)
Quarter: 2022Q4

REPORT INFORMATION
  Report Type: Report from Study
  Country: US (occurrence: US)
  Receive Date: 20221021
  Receipt Date: 20221130
  Transmission Date: 20230113
  Serious: Yes (Hospitalization)
  Sender: FDA-Public Use
  Company Number: US-ABBVIE-4168997

PATIENT
  Sex: Male

DRUGS (1)
  1. IMBRUVICA [Suspect]
     Active Substance: IBRUTINIB
     Indication: Chronic lymphocytic leukaemia
     Route: 048
     Dates: start: 202011

REACTIONS (8)
  - Kidney infection [Unknown]
  - Renal disorder [Unknown]
  - Bladder disorder [Unknown]
  - Vein disorder [Unknown]
  - Mental disorder [Unknown]
  - Anxiety [Unknown]
  - Cold sweat [Unknown]
  - Peripheral swelling [Recovered/Resolved]
